FAERS Safety Report 9656407 (Version 1)
Quarter: 2013Q4

REPORT INFORMATION
  Report Type: Report from Study
  Country: US (occurrence: US)
  Receive Date: 20131030
  Receipt Date: 20131030
  Transmission Date: 20140711
  Serious: Yes (Other)
  Sender: FDA-Public Use
  Company Number: US-BAYER-2013-129012

PATIENT
  Age: 37 Year
  Sex: Female

DRUGS (4)
  1. BETASERON [Suspect]
     Indication: MULTIPLE SCLEROSIS
     Dosage: 8 MIU, QOD
     Route: 058
     Dates: start: 20130717
  2. TYLENOL EXTRA STRENGTH [Concomitant]
     Indication: PREMEDICATION
  3. PERCOCET [Concomitant]
     Indication: PREMEDICATION
  4. DIHYDROERGOTAMINE [Concomitant]
     Indication: MIGRAINE
     Dosage: UNK
     Dates: start: 20131014, end: 20131015

REACTIONS (6)
  - Migraine [Recovered/Resolved]
  - Migraine [Recovered/Resolved]
  - Cardiac disorder [None]
  - Dyspnoea [None]
  - Angina pectoris [None]
  - Cardiac discomfort [None]
